FAERS Safety Report 4416965-8 (Version None)
Quarter: 2004Q3

REPORT INFORMATION
  Report Type: 
  Country: None (occurrence: None)
  Receive Date: 20040806
  Receipt Date: 20030925
  Transmission Date: 20050211
  Serious: No
  Sender: FDA-Public Use
  Company Number: US-GLAXOSMITHKLINE-A0427532A

PATIENT
  Age: 40 Year
  Sex: Female
  Weight: 57.7 kg

DRUGS (3)
  1. MALARONE [Suspect]
     Indication: MALARIA
     Dosage: 1TAB PER DAY
     Route: 048
     Dates: start: 20030814, end: 20030904
  2. LEVOTHYROXINE SODIUM [Concomitant]
     Dosage: 1.25U UNKNOWN
     Route: 048
  3. ALESSE [Concomitant]
     Dosage: 1.37U UNKNOWN
     Route: 048

REACTIONS (1)
  - BLOOD THYROID STIMULATING HORMONE INCREASED [None]
